FAERS Safety Report 21122123 (Version 1)
Quarter: 2022Q3

REPORT INFORMATION
  Report Type: Spontaneous
  Country: US (occurrence: US)
  Receive Date: 20220722
  Receipt Date: 20220722
  Transmission Date: 20221026
  Serious: No
  Sender: FDA-Public Use
  Company Number: US-SANOFI-01194589

PATIENT
  Age: 5 Year
  Sex: Female

DRUGS (3)
  1. LANTUS [Suspect]
     Active Substance: INSULIN GLARGINE
     Indication: Type 1 diabetes mellitus
     Dosage: 2.5 IU
  2. LANTUS [Suspect]
     Active Substance: INSULIN GLARGINE
     Dosage: 2 IU
  3. LANTUS [Suspect]
     Active Substance: INSULIN GLARGINE
     Dosage: 3 IU, BID
     Dates: start: 202206

REACTIONS (7)
  - Blood glucose increased [Unknown]
  - Mood altered [Unknown]
  - Therapeutic product effect variable [Unknown]
  - Inappropriate schedule of product administration [Unknown]
  - Product storage error [Unknown]
  - Product use issue [Unknown]
  - Drug ineffective [Unknown]
